FAERS Safety Report 9471184 (Version 1)
Quarter: 2013Q3

REPORT INFORMATION
  Report Type: Spontaneous
  Country: US (occurrence: US)
  Receive Date: 20130822
  Receipt Date: 20130822
  Transmission Date: 20140515
  Serious: Yes (Hospitalization, Other)
  Sender: FDA-Public Use
  Company Number: US-B.I. PHARMACEUTICALS,INC./RIDGEFIELD-2013-BI-25649BP

PATIENT
  Age: 52 Year
  Sex: Male
  Weight: 115 kg

DRUGS (14)
  1. PRADAXA [Suspect]
     Indication: PRODUCT USED FOR UNKNOWN INDICATION
     Route: 065
  2. SIMCOR [Suspect]
     Indication: BLOOD CHOLESTEROL INCREASED
     Dosage: 1000/40 MG AT BEDTIME (1 DOSAGE FORM)
     Dates: start: 200808
  3. TRICOR [Concomitant]
  4. FLOMAX [Concomitant]
  5. NOVOLOG [Concomitant]
  6. LEVAMIR [Concomitant]
  7. BISTOLIC [Concomitant]
  8. NEURONTIN [Concomitant]
  9. AMBIEN [Concomitant]
  10. CYMBALTA [Concomitant]
  11. RAMIPRIL [Concomitant]
  12. XORELTO [Concomitant]
  13. LORTAB [Concomitant]
  14. LASIX [Concomitant]

REACTIONS (8)
  - Renal cancer [Recovered/Resolved]
  - Gastrointestinal haemorrhage [Recovered/Resolved]
  - Venous insufficiency [Recovered/Resolved]
  - Atrial fibrillation [Recovered/Resolved]
  - Paraesthesia [Recovered/Resolved]
  - Pruritus [Recovered/Resolved]
  - Burning sensation [Recovered/Resolved]
  - Red blood cell count decreased [Not Recovered/Not Resolved]
